FAERS Safety Report 6009985-3 (Version None)
Quarter: 2008Q4

REPORT INFORMATION
  Report Type: 
  Country: None (occurrence: None)
  Receive Date: 20081216
  Receipt Date: 20081212
  Transmission Date: 20090506
  Serious: Yes (Other)
  Sender: FDA-Public Use
  Company Number: THQ2008A03030

PATIENT
  Age: 57 Year
  Sex: Male

DRUGS (5)
  1. ACTOS [Suspect]
     Indication: TYPE 2 DIABETES MELLITUS
     Dosage: 30 MG, PER ORAL
     Route: 048
  2. ATACAND HCT [Concomitant]
  3. AMARYL (GLIMEPIRIDE) [Concomitant]
  4. ASPIRIN [Concomitant]
  5. PRAVACHOL [Concomitant]

REACTIONS (1)
  - RENAL IMPAIRMENT [None]
